FAERS Safety Report 18588226 (Version 4)
Quarter: 2021Q1

REPORT INFORMATION
  Report Type: Spontaneous
  Country: BR (occurrence: BR)
  Receive Date: 20201208
  Receipt Date: 20210316
  Transmission Date: 20210419
  Serious: No
  Sender: FDA-Public Use
  Company Number: BR-TOLMAR, INC.-20BR024166

PATIENT
  Sex: Male

DRUGS (1)
  1. ELIGARD [Suspect]
     Active Substance: LEUPROLIDE ACETATE
     Indication: PRODUCT USED FOR UNKNOWN INDICATION
     Dosage: 22.5 MG
     Route: 065
     Dates: start: 20201111

REACTIONS (4)
  - Device leakage [Unknown]
  - Incorrect dose administered [Unknown]
  - Product administration error [Unknown]
  - Syringe issue [Unknown]

NARRATIVE: CASE EVENT DATE: 20201111
